FAERS Safety Report 4642046-4 (Version None)
Quarter: 2005Q2

REPORT INFORMATION
  Report Type: 
  Country: None (occurrence: None)
  Receive Date: 20050420
  Receipt Date: 20050408
  Transmission Date: 20051028
  Serious: No
  Sender: FDA-Public Use
  Company Number: 2005UW05531

PATIENT
  Age: 55 Year
  Sex: Male

DRUGS (2)
  1. SEROQUEL [Suspect]
  2. XANAX [Concomitant]

REACTIONS (5)
  - ABASIA [None]
  - CONFUSIONAL STATE [None]
  - DYSARTHRIA [None]
  - DYSSTASIA [None]
  - FALL [None]
